FAERS Safety Report 18970424 (Version 1)
Quarter: 2021Q1

REPORT INFORMATION
  Report Type: Spontaneous
  Country: GB (occurrence: GB)
  Receive Date: 20210304
  Receipt Date: 20210304
  Transmission Date: 20210420
  Serious: Yes (Hospitalization)
  Sender: FDA-Public Use
  Company Number: GB-TEVA-2021-GB-1883600

PATIENT
  Age: 36 Year
  Sex: Female

DRUGS (5)
  1. LANSOPRAZOLE. [Concomitant]
     Active Substance: LANSOPRAZOLE
     Dosage: 60 MILLIGRAM DAILY;
  2. ANISEED [Concomitant]
     Dosage: 10?20ML FOUR TIMES A DAY + MEALS EVERY EVENING.
  3. FOLIC ACID. [Concomitant]
     Active Substance: FOLIC ACID
     Dosage: 5MG
  4. PROPRANOLOL [Concomitant]
     Active Substance: PROPRANOLOL HYDROCHLORIDE
     Dosage: 80 MILLIGRAM DAILY;
  5. TRAMADOL. [Suspect]
     Active Substance: TRAMADOL
     Dosage: 1?2 FOUR TIMES A DAY, 50MG
     Route: 065

REACTIONS (5)
  - Electrocardiogram QT interval [Unknown]
  - Dizziness [Unknown]
  - Dyspnoea exertional [Unknown]
  - Tachycardia [Unknown]
  - Palpitations [Unknown]
